FAERS Safety Report 5674582-6 (Version None)
Quarter: 2008Q1

REPORT INFORMATION
  Report Type: 
  Country: None (occurrence: None)
  Receive Date: 20080320
  Receipt Date: 20080311
  Transmission Date: 20080703
  Serious: Yes (Other)
  Sender: FDA-Public Use
  Company Number: US-JNJFOC-20080302898

PATIENT
  Age: 60 Year
  Sex: Female

DRUGS (3)
  1. ARESTIN [Suspect]
     Indication: DRUG USE FOR UNKNOWN INDICATION
     Route: 004
  2. ORAQIX [Suspect]
     Indication: DRUG USE FOR UNKNOWN INDICATION
     Route: 065
  3. SYNTHROID [Concomitant]
     Route: 065

REACTIONS (4)
  - ABNORMAL BEHAVIOUR [None]
  - DELUSION [None]
  - DEPRESSED MOOD [None]
  - PSYCHOMOTOR HYPERACTIVITY [None]
